FAERS Safety Report 21966637 (Version 1)
Quarter: 2023Q1

REPORT INFORMATION
  Report Type: Spontaneous
  Country: TR (occurrence: TR)
  Receive Date: 20230208
  Receipt Date: 20230208
  Transmission Date: 20230417
  Serious: Yes (Hospitalization)
  Sender: FDA-Public Use
  Company Number: TR-002147023-NVSC2023TR025712

PATIENT
  Age: 96 Year
  Sex: Female

DRUGS (2)
  1. EXELON [Suspect]
     Active Substance: RIVASTIGMINE TARTRATE
     Indication: Dementia
     Dosage: 4.6 MG, QD STARTED ON 10 YEARS AGO (PATCH 5)
     Route: 062
  2. EXELON [Suspect]
     Active Substance: RIVASTIGMINE TARTRATE
     Dosage: 9.5 MG, QD STARTED ON 10 DAYS AGO (PATCH 10)
     Route: 062

REACTIONS (6)
  - Blood glucose increased [Not Recovered/Not Resolved]
  - Speech disorder [Unknown]
  - Urinary tract infection [Unknown]
  - Overdose [Unknown]
  - Product administration error [Unknown]
  - Inappropriate schedule of product administration [Unknown]
